FAERS Safety Report 6612377-7 (Version None)
Quarter: 2010Q1

REPORT INFORMATION
  Report Type: 
  Country: None (occurrence: None)
  Receive Date: 20100303
  Receipt Date: 20100223
  Transmission Date: 20100710
  Serious: Yes (Life-Threatening, Hospitalization, Other)
  Sender: FDA-Public Use
  Company Number: DE-BRISTOL-MYERS SQUIBB COMPANY-14873673

PATIENT
  Age: 54 Year
  Sex: Male

DRUGS (5)
  1. ABILIFY [Suspect]
     Indication: SCHIZOPHRENIA, CATATONIC TYPE
     Route: 048
     Dates: start: 20090813, end: 20091119
  2. LEPONEX [Suspect]
     Indication: SCHIZOPHRENIA, CATATONIC TYPE
     Route: 048
     Dates: start: 20091103, end: 20091119
  3. ZELDOX [Suspect]
  4. TREVILOR [Concomitant]
     Indication: DEPRESSION
     Dosage: TREVILOR RET
     Route: 048
     Dates: start: 20090821, end: 20091119
  5. CEFTRIAXONE (ROCEPHIN) [Concomitant]
     Indication: INFECTION
     Route: 042
     Dates: start: 20091118

REACTIONS (5)
  - CARDIOVASCULAR DISORDER [None]
  - ELECTROCARDIOGRAM QT PROLONGED [None]
  - LEFT VENTRICULAR DYSFUNCTION [None]
  - MYOCARDITIS [None]
  - RENAL FAILURE ACUTE [None]
